FAERS Safety Report 24097737 (Version 1)
Quarter: 2024Q3

REPORT INFORMATION
  Report Type: Spontaneous
  Country: FR (occurrence: FR)
  Receive Date: 20240716
  Receipt Date: 20240716
  Transmission Date: 20241016
  Serious: Yes (Hospitalization)
  Sender: NOVARTIS
  Company Number: None

PATIENT
  Age: 52 Year
  Sex: Male
  Weight: 84 kg

DRUGS (2)
  1. MEKINIST [Suspect]
     Active Substance: TRAMETINIB DIMETHYL SULFOXIDE
     Indication: Cholangiocarcinoma
     Dosage: 1.5 MG
     Route: 048
     Dates: start: 20240413
  2. TAFINLAR [Suspect]
     Active Substance: DABRAFENIB MESYLATE
     Indication: Cholangiocarcinoma
     Dosage: 4 DOSAGE FORM
     Route: 048
     Dates: start: 20240413

REACTIONS (2)
  - Neutropenia [Recovered/Resolved]
  - Hyperthermia [Recovered/Resolved]

NARRATIVE: CASE EVENT DATE: 20240516
